FAERS Safety Report 5195128-5 (Version None)
Quarter: 2006Q4

REPORT INFORMATION
  Report Type: 
  Country: None (occurrence: None)
  Receive Date: 20061229
  Receipt Date: 20050907
  Transmission Date: 20070319
  Serious: Yes (Hospitalization, Other)
  Sender: FDA-Public Use
  Company Number: US-PFIZER INC-2005125619

PATIENT
  Sex: Female
  Weight: 83 kg

DRUGS (3)
  1. CELEBREX [Suspect]
     Indication: PAIN
  2. BEXTRA [Suspect]
     Indication: PAIN
  3. VIOXX [Suspect]
     Route: 048

REACTIONS (10)
  - ANGIOPATHY [None]
  - CARDIOMYOPATHY [None]
  - CEREBROVASCULAR ACCIDENT [None]
  - EJECTION FRACTION DECREASED [None]
  - FINGER AMPUTATION [None]
  - HEPATIC FUNCTION ABNORMAL [None]
  - SKIN DISORDER [None]
  - SKIN ULCER [None]
  - STEVENS-JOHNSON SYNDROME [None]
  - THROMBOSIS [None]
